FAERS Safety Report 4274403-2 (Version None)
Quarter: 2004Q1

REPORT INFORMATION
  Report Type: 
  Country: None (occurrence: None)
  Receive Date: 20040120
  Receipt Date: 20040115
  Transmission Date: 20041129
  Serious: Yes (Disabling)
  Sender: FDA-Public Use
  Company Number: WAES 0401USA01205

PATIENT
  Sex: Female

DRUGS (14)
  1. FOSAMAX [Concomitant]
  2. ASPIRIN [Concomitant]
  3. ATENOLOL [Concomitant]
  4. LEXAPRO [Concomitant]
  5. ZETIA [Concomitant]
  6. FOLIC ACID [Concomitant]
  7. HYDRODIURIL [Concomitant]
  8. LEVOTHROID [Concomitant]
  9. ASACOL [Concomitant]
  10. NIFEDIPINE [Concomitant]
  11. NITROGLYCERIN [Concomitant]
  12. ZOCOR [Suspect]
     Indication: BLOOD CHOLESTEROL INCREASED
     Route: 048
  13. VITAMIN D (UNSPECIFIED) [Concomitant]
  14. VITAMIN E [Concomitant]

REACTIONS (1)
  - PAIN IN EXTREMITY [None]
